FAERS Safety Report 4411641-X (Version None)
Quarter: 2004Q3

REPORT INFORMATION
  Report Type: 
  Country: None (occurrence: None)
  Receive Date: 20040727
  Receipt Date: 20040727
  Transmission Date: 20050211
  Serious: Yes (Death, Hospitalization)
  Sender: FDA-Public Use
  Company Number: None

PATIENT
  Sex: Male
  Weight: 92.0802 kg

DRUGS (2)
  1. IRINOTECAN 40 MG AND 100 MG PHARMACIA CORPORATION [Suspect]
     Indication: GLIOBLASTOMA
     Dosage: 400MG/M2 DAYS 1, 8, 2 INTRAVENOUS
     Route: 042
     Dates: start: 20040524, end: 20040621
  2. RADIATION THERAPY [Suspect]
     Dosage: 200 CGY 5 TIMES OTHER
     Route: 050

REACTIONS (9)
  - ASTHENIA [None]
  - CHILLS [None]
  - DYSPHAGIA [None]
  - HYPERHIDROSIS [None]
  - HYPOTENSION [None]
  - PULMONARY EMBOLISM [None]
  - PYREXIA [None]
  - SINUS TACHYCARDIA [None]
  - UROSEPSIS [None]
